FAERS Safety Report 26111673 (Version 1)
Quarter: 2025Q4

REPORT INFORMATION
  Report Type: Spontaneous
  Country: GB (occurrence: GB)
  Receive Date: 20251202
  Receipt Date: 20251202
  Transmission Date: 20260118
  Serious: Yes (Hospitalization)
  Sender: MYLAN
  Company Number: GB-MYLANLABS-2025M1100690

PATIENT
  Age: 42 Year
  Sex: Female

DRUGS (28)
  1. FENTANYL [Suspect]
     Active Substance: FENTANYL
     Indication: Epidural anaesthesia
     Dosage: UNK
  2. FENTANYL [Suspect]
     Active Substance: FENTANYL
     Dosage: UNK
  3. FENTANYL [Suspect]
     Active Substance: FENTANYL
     Dosage: UNK
     Route: 008
  4. FENTANYL [Suspect]
     Active Substance: FENTANYL
     Dosage: UNK
     Route: 008
  5. FENTANYL [Suspect]
     Active Substance: FENTANYL
     Dosage: 100 MICROGRAM
  6. FENTANYL [Suspect]
     Active Substance: FENTANYL
     Dosage: 100 MICROGRAM
  7. FENTANYL [Suspect]
     Active Substance: FENTANYL
     Dosage: 100 MICROGRAM
     Route: 008
  8. FENTANYL [Suspect]
     Active Substance: FENTANYL
     Dosage: 100 MICROGRAM
     Route: 008
  9. ROPIVACAINE [Suspect]
     Active Substance: ROPIVACAINE
     Indication: Epidural anaesthesia
     Dosage: 20 MILLILITER
  10. ROPIVACAINE [Suspect]
     Active Substance: ROPIVACAINE
     Dosage: 20 MILLILITER
     Route: 008
  11. ROPIVACAINE [Suspect]
     Active Substance: ROPIVACAINE
     Dosage: 20 MILLILITER
     Route: 008
  12. ROPIVACAINE [Suspect]
     Active Substance: ROPIVACAINE
     Dosage: 20 MILLILITER
  13. BUPIVACAINE [Suspect]
     Active Substance: BUPIVACAINE
     Indication: Epidural anaesthesia
     Dosage: UNK
  14. BUPIVACAINE [Suspect]
     Active Substance: BUPIVACAINE
     Dosage: UNK
     Route: 008
  15. BUPIVACAINE [Suspect]
     Active Substance: BUPIVACAINE
     Dosage: UNK
     Route: 008
  16. BUPIVACAINE [Suspect]
     Active Substance: BUPIVACAINE
     Dosage: UNK
  17. OXYTOCIN [Suspect]
     Active Substance: OXYTOCIN
     Indication: Labour induction
     Dosage: UNK
  18. OXYTOCIN [Suspect]
     Active Substance: OXYTOCIN
     Dosage: UNK
     Route: 065
  19. OXYTOCIN [Suspect]
     Active Substance: OXYTOCIN
     Dosage: UNK
     Route: 065
  20. OXYTOCIN [Suspect]
     Active Substance: OXYTOCIN
     Dosage: UNK
  21. ENOXAPARIN SODIUM [Suspect]
     Active Substance: ENOXAPARIN SODIUM
     Indication: Thrombosis prophylaxis
     Dosage: UNK
  22. ENOXAPARIN SODIUM [Suspect]
     Active Substance: ENOXAPARIN SODIUM
     Indication: Antiphospholipid syndrome
     Dosage: UNK
     Route: 065
  23. ENOXAPARIN SODIUM [Suspect]
     Active Substance: ENOXAPARIN SODIUM
     Dosage: UNK
     Route: 065
  24. ENOXAPARIN SODIUM [Suspect]
     Active Substance: ENOXAPARIN SODIUM
     Dosage: UNK
  25. DINOPROSTONE [Suspect]
     Active Substance: DINOPROSTONE
     Indication: Labour induction
     Dosage: UNK
  26. DINOPROSTONE [Suspect]
     Active Substance: DINOPROSTONE
     Dosage: UNK
     Route: 065
  27. DINOPROSTONE [Suspect]
     Active Substance: DINOPROSTONE
     Dosage: UNK
     Route: 065
  28. DINOPROSTONE [Suspect]
     Active Substance: DINOPROSTONE
     Dosage: UNK

REACTIONS (2)
  - Horner^s syndrome [Recovered/Resolved]
  - Maternal exposure during delivery [Recovered/Resolved]
